FAERS Safety Report 8612016-X (Version None)
Quarter: 2012Q3

REPORT INFORMATION
  Report Type: 
  Country: None (occurrence: None)
  Receive Date: 20120822
  Receipt Date: 20120820
  Transmission Date: 20120928
  Serious: Yes (Hospitalization)
  Sender: FDA-Public Use
  Company Number: US-GLAXOSMITHKLINE-B0822797A

PATIENT
  Age: 72 Year
  Sex: Male
  Weight: 81.8 kg

DRUGS (7)
  1. LEVOTHYROXINE SODIUM [Concomitant]
     Indication: HYPOTHYROIDISM
     Dosage: 137MG PER DAY
     Route: 048
     Dates: start: 20080104
  2. FLUTICASONE FUROATE [Suspect]
     Indication: CHRONIC OBSTRUCTIVE PULMONARY DISEASE
  3. COMBIVENT [Concomitant]
     Indication: CHRONIC OBSTRUCTIVE PULMONARY DISEASE
     Route: 055
     Dates: start: 20110425
  4. TOVIAZ [Concomitant]
     Indication: BENIGN PROSTATIC HYPERPLASIA
     Dosage: 8MG PER DAY
     Route: 048
     Dates: start: 20100101
  5. PRAVASTATIN [Concomitant]
     Indication: HYPERLIPIDAEMIA
     Dosage: 20MG PER DAY
     Route: 048
     Dates: start: 20100301
  6. AMLODIPINE [Concomitant]
     Indication: HYPERTENSION
     Dosage: 10MG PER DAY
     Route: 048
     Dates: start: 20111012
  7. OXYGEN [Concomitant]
     Indication: HYPOXIA
     Route: 055
     Dates: start: 20110426

REACTIONS (1)
  - PNEUMONIA [None]
